FAERS Safety Report 9031677 (Version 10)
Quarter: 2015Q2

REPORT INFORMATION
  Report Type: Report from Study
  Country: US (occurrence: US)
  Receive Date: 20130124
  Receipt Date: 20150429
  Transmission Date: 20150821
  Serious: Yes (Death, Hospitalization, Other)
  Sender: FDA-Public Use
  Company Number: US-ACTELION-A-US2013-77991

PATIENT
  Age: 46 Year
  Sex: Female

DRUGS (13)
  1. FLONASE [Concomitant]
     Active Substance: FLUTICASONE PROPIONATE
  2. THIAMINE [Concomitant]
     Active Substance: THIAMINE
  3. TRAZODONE [Concomitant]
     Active Substance: TRAZODONE HYDROCHLORIDE
  4. ZENPEP [Concomitant]
     Active Substance: PANCRELIPASE\PANCRELIPASE AMYLASE\PANCRELIPASE LIPASE\PANCRELIPASE PROTEASE
  5. NEURONTIN [Concomitant]
     Active Substance: GABAPENTIN
  6. FOLIC ACID. [Concomitant]
     Active Substance: FOLIC ACID
  7. MAGNESIUM SULFATE. [Concomitant]
     Active Substance: MAGNESIUM SULFATE
  8. VELETRI [Suspect]
     Active Substance: EPOPROSTENOL
     Indication: PULMONARY ARTERIAL HYPERTENSION
     Dosage: 28 NG/KG, PER MIN
     Route: 042
     Dates: start: 20120216, end: 20150325
  9. PROGRAF [Concomitant]
     Active Substance: TACROLIMUS\TACROLIMUS ANHYDROUS
     Dosage: UNK
  10. VELETRI [Suspect]
     Active Substance: EPOPROSTENOL
     Dosage: 18 UNK, UNK
     Route: 042
     Dates: start: 20120221, end: 20150325
  11. ADCIRCA [Suspect]
     Active Substance: TADALAFIL
     Indication: PRODUCT USED FOR UNKNOWN INDICATION
     Route: 065
  12. MAGNESIUM [Concomitant]
     Active Substance: MAGNESIUM
  13. ZANTAC [Concomitant]
     Active Substance: RANITIDINE HYDROCHLORIDE

REACTIONS (28)
  - Acute kidney injury [Recovering/Resolving]
  - Haemoglobin decreased [Recovering/Resolving]
  - Ascites [Unknown]
  - Dehydration [Recovering/Resolving]
  - Blood magnesium decreased [Recovering/Resolving]
  - Vomiting [Unknown]
  - Cystitis [Recovered/Resolved]
  - Anaemia [Recovering/Resolving]
  - Nausea [Unknown]
  - Hypotension [Unknown]
  - Diarrhoea [Unknown]
  - Hypoperfusion [Recovering/Resolving]
  - Parvovirus B19 test positive [Unknown]
  - Transfusion [Recovering/Resolving]
  - Platelet count decreased [Recovering/Resolving]
  - Malabsorption [Unknown]
  - Pulmonary hypertension [Fatal]
  - Disease progression [Fatal]
  - Pancytopenia [Recovering/Resolving]
  - Blood creatinine increased [Recovering/Resolving]
  - Prerenal failure [Recovering/Resolving]
  - Respiratory failure [Fatal]
  - Faecal fat increased [Unknown]
  - Oedema peripheral [Unknown]
  - Renal failure [Fatal]
  - Pancreatitis chronic [Unknown]
  - Blood potassium decreased [Recovering/Resolving]
  - White blood cell count decreased [Recovering/Resolving]

NARRATIVE: CASE EVENT DATE: 201301
